FAERS Safety Report 6631114-3 (Version None)
Quarter: 2010Q1

REPORT INFORMATION
  Report Type: 
  Country: None (occurrence: None)
  Receive Date: 20100309
  Receipt Date: 20100301
  Transmission Date: 20100710
  Serious: Yes (Other)
  Sender: FDA-Public Use
  Company Number: TPA2010A00947

PATIENT
  Age: 80 Year
  Sex: Male

DRUGS (1)
  1. ULORIC [Suspect]
     Indication: GOUT
     Dosage: 80 MG, 1 IN 1 D, PER ORAL
     Route: 048

REACTIONS (2)
  - ACUTE HEPATIC FAILURE [None]
  - CONFUSIONAL STATE [None]
